FAERS Safety Report 26145029 (Version 1)
Quarter: 2025Q4

REPORT INFORMATION
  Report Type: Spontaneous
  Country: US (occurrence: US)
  Receive Date: 20251211
  Receipt Date: 20251211
  Transmission Date: 20260117
  Serious: No
  Sender: ROCHE
  Company Number: US-ROCHE-10000455591

PATIENT
  Sex: Female

DRUGS (5)
  1. ACTEMRA ACTPEN [Suspect]
     Active Substance: TOCILIZUMAB
     Indication: Systemic scleroderma
     Dosage: FORM STRENGTH: 162 MG/0.9 M
     Route: 058
     Dates: start: 202403
  2. AMBRISENTAN [Concomitant]
     Active Substance: AMBRISENTAN
  3. WINREVAIR [Concomitant]
     Active Substance: SOTATERCEPT-CSRK
  4. ADEMPAS [Concomitant]
     Active Substance: RIOCIGUAT
  5. OFEV [Concomitant]
     Active Substance: NINTEDANIB

REACTIONS (2)
  - Dyspnoea exertional [Unknown]
  - Anxiety [Unknown]
